FAERS Safety Report 8905817 (Version 1)
Quarter: 2012Q4

REPORT INFORMATION
  Report Type: 
  Country: SG (occurrence: SG)
  Receive Date: 20121113
  Receipt Date: 20121113
  Transmission Date: 20130627
  Serious: Yes (Other)
  Sender: FDA-Public Use
  Company Number: SG-GLAXOSMITHKLINE-B0843839A

PATIENT
  Age: 24 Year
  Sex: Female

DRUGS (1)
  1. CEFUROXIME [Suspect]

REACTIONS (1)
  - Periorbital oedema [Unknown]
